FAERS Safety Report 13618539 (Version 3)
Quarter: 2017Q3

REPORT INFORMATION
  Report Type: Spontaneous
  Country: BR (occurrence: BR)
  Receive Date: 20170606
  Receipt Date: 20170706
  Transmission Date: 20171127
  Serious: Yes (Hospitalization)
  Sender: FDA-Public Use
  Company Number: BR-PFIZER INC-2016194082

PATIENT
  Age: 66 Year
  Sex: Male
  Weight: 87 kg

DRUGS (15)
  1. CABERGOLINE. [Suspect]
     Active Substance: CABERGOLINE
     Indication: BLOOD PROLACTIN INCREASED
  2. DOSTINEX [Suspect]
     Active Substance: CABERGOLINE
     Indication: NODULE
     Dosage: 3 DF, WEEKLY
  3. PIOGLIT [Concomitant]
     Active Substance: PIOGLITAZONE HYDROCHLORIDE
     Indication: DIABETES MELLITUS
     Dosage: 30 MG, 1X/DAY
  4. ASPIRINA [Concomitant]
     Active Substance: ASPIRIN
     Indication: PROPHYLAXIS
     Dosage: UNK
  5. ASPIRINA PREVENT [Concomitant]
     Active Substance: ASPIRIN
     Indication: ABDOMINAL DISCOMFORT
     Dosage: UNK
  6. DOSTINEX [Suspect]
     Active Substance: CABERGOLINE
     Indication: BLOOD PROLACTIN INCREASED
     Dosage: 1 TABLET, DAILY
  7. GLIFAGE [Concomitant]
     Active Substance: METFORMIN HYDROCHLORIDE
     Indication: DIABETES MELLITUS
     Dosage: 500 MG, 2X/DAY
  8. CABERGOLINE. [Suspect]
     Active Substance: CABERGOLINE
     Indication: PROLACTIN-PRODUCING PITUITARY TUMOUR
  9. DIAMICRON [Concomitant]
     Active Substance: GLICLAZIDE
     Indication: DIABETES MELLITUS
     Dosage: 60 MG, 2X/DAY
  10. ARADOIS [Concomitant]
     Active Substance: LOSARTAN POTASSIUM
     Indication: BLOOD PRESSURE ABNORMAL
     Dosage: 50 MG, 2X/DAY
  11. DOSTINEX [Suspect]
     Active Substance: CABERGOLINE
     Indication: PROLACTIN-PRODUCING PITUITARY TUMOUR
     Dosage: 3.5 MG, WEEKLY
  12. DAFLON /00426001/ [Concomitant]
     Active Substance: DIOSMIN
     Indication: CARDIAC DISORDER
     Dosage: UNK
  13. CABERGOLINE. [Suspect]
     Active Substance: CABERGOLINE
     Indication: NODULE
     Dosage: 1 TABLET, DAILY
  14. GALVUS [Concomitant]
     Active Substance: VILDAGLIPTIN
     Indication: DIABETES MELLITUS
     Dosage: UNK
  15. OLMETEC [Concomitant]
     Active Substance: OLMESARTAN MEDOXOMIL
     Indication: HYPERTENSION
     Dosage: 1 DF, 2X/DAY(MORNING AND NIGHT)

REACTIONS (7)
  - Hyperprolactinaemia [Not Recovered/Not Resolved]
  - Headache [Not Recovered/Not Resolved]
  - Pain in extremity [Recovered/Resolved]
  - Drug ineffective [Not Recovered/Not Resolved]
  - Vomiting [Not Recovered/Not Resolved]
  - Eye movement disorder [Not Recovered/Not Resolved]
  - Feeling abnormal [Not Recovered/Not Resolved]

NARRATIVE: CASE EVENT DATE: 2009
